FAERS Safety Report 8632333 (Version 3)
Quarter: 2012Q4

REPORT INFORMATION
  Report Type: 
  Country: US (occurrence: US)
  Receive Date: 20120625
  Receipt Date: 20121130
  Transmission Date: 20130627
  Serious: Yes (Hospitalization)
  Sender: FDA-Public Use
  Company Number: US-BAYER-2012-060764

PATIENT
  Age: 21 Year
  Sex: Female
  Weight: 70.3 kg

DRUGS (11)
  1. YAZ [Suspect]
     Indication: CONTRACEPTION
     Dosage: UNK
     Dates: start: 201010, end: 201012
  2. GIANVI [Suspect]
     Indication: CONTRACEPTION
     Dosage: UNK
     Dates: start: 20110107, end: 20110316
  3. AMPHETAMINE SALTS [Concomitant]
     Indication: ATTENTION DEFICIT DISORDER
     Dosage: 20 mg, UNK
     Dates: start: 20100816
  4. HYDROCODONE W/APAP [Concomitant]
     Dosage: 5/500 mg tablets
     Dates: start: 20100807, end: 20111229
  5. HYDROCODONE W/APAP [Concomitant]
     Dosage: 7.5/325 mg tablets
     Dates: start: 20100807, end: 20111229
  6. NAPROXEN [Concomitant]
     Dosage: 50 mg, UNK
     Dates: start: 20110312
  7. METHOCARBAMOL [METHOCARBAMOL] [Concomitant]
     Dosage: 750 mg, UNK
     Dates: start: 20110312
  8. NSAID^S [Concomitant]
  9. ADDERALL [Concomitant]
  10. CENTRALLY ACTING SYMPATHOMIMETICS [Concomitant]
  11. AMFETAMINE [Concomitant]
     Dosage: 15 mg, UNK
     Dates: start: 20100210, end: 20120206

REACTIONS (5)
  - Subclavian vein thrombosis [Recovering/Resolving]
  - Subclavian vein thrombosis [Recovering/Resolving]
  - Thrombophlebitis superficial [None]
  - Injury [Recovering/Resolving]
  - Pain in extremity [Recovering/Resolving]
